FAERS Safety Report 5168420-8 (Version None)
Quarter: 2006Q4

REPORT INFORMATION
  Report Type: 
  Country: None (occurrence: None)
  Receive Date: 20061208
  Receipt Date: 20061204
  Transmission Date: 20070319
  Serious: Yes (Hospitalization)
  Sender: FDA-Public Use
  Company Number: FR-ROCHE-473698

PATIENT
  Age: 92 Year
  Sex: Male

DRUGS (8)
  1. LOXEN LP 50 [Suspect]
     Indication: ESSENTIAL HYPERTENSION
     Route: 048
     Dates: end: 20061017
  2. CORDARONE [Suspect]
     Indication: DRUG USE FOR UNKNOWN INDICATION
     Route: 048
  3. CORDARONE [Suspect]
     Dosage: REDUCED TO '100 MG PER DAY EXCEPT THE WEEKEND'
     Route: 048
  4. SPAGULAX [Concomitant]
  5. TRANSULOSE [Concomitant]
  6. LASIX [Concomitant]
  7. OMIX [Concomitant]
  8. EFFERALGAN CODEINE [Concomitant]

REACTIONS (2)
  - NEUROPATHY PERIPHERAL [None]
  - PERIPHERAL SENSORIMOTOR NEUROPATHY [None]
